FAERS Safety Report 11293766 (Version 1)
Quarter: 2015Q3

REPORT INFORMATION
  Report Type: Report from Study
  Country: DE (occurrence: DE)
  Receive Date: 20150722
  Receipt Date: 20150722
  Transmission Date: 20151125
  Serious: Yes (Other)
  Sender: FDA-Public Use
  Company Number: DE-BAXTER-2015BAX040107

PATIENT
  Age: 75 Year
  Sex: Male

DRUGS (1)
  1. SEVOFLURAN BAXTER 100 % FL?SSIGKEIT ZUR HERSTELLUNG EINES DAMPFS ZUR I [Suspect]
     Active Substance: SEVOFLURANE
     Indication: SEDATIVE THERAPY
     Dosage: BOLUS
     Route: 055

REACTIONS (1)
  - Intracranial pressure increased [Unknown]
